FAERS Safety Report 9424106 (Version 1)
Quarter: 2013Q3

REPORT INFORMATION
  Report Type: Report from Study
  Country: CZ (occurrence: CZ)
  Receive Date: 20130729
  Receipt Date: 20130729
  Transmission Date: 20140515
  Serious: Yes (Other)
  Sender: FDA-Public Use
  Company Number: CZ-ROCHE-1244778

PATIENT
  Sex: 0

DRUGS (8)
  1. CAPECITABINE [Suspect]
     Indication: OESOPHAGEAL CARCINOMA
     Route: 048
  2. CAPECITABINE [Suspect]
     Indication: OESOPHAGEAL ADENOCARCINOMA
  3. EPIRUBICIN [Suspect]
     Indication: OESOPHAGEAL CARCINOMA
     Dosage: ON DAY 1
     Route: 042
  4. EPIRUBICIN [Suspect]
     Indication: OESOPHAGEAL ADENOCARCINOMA
  5. CISPLATIN [Suspect]
     Indication: OESOPHAGEAL CARCINOMA
     Dosage: ON DAY 1
     Route: 042
  6. CISPLATIN [Suspect]
     Indication: OESOPHAGEAL ADENOCARCINOMA
  7. FLUOROURACIL [Suspect]
     Indication: OESOPHAGEAL CARCINOMA
     Dosage: ON DAY 1
     Route: 042
  8. FLUOROURACIL [Suspect]
     Indication: OESOPHAGEAL ADENOCARCINOMA

REACTIONS (9)
  - Neutropenia [Unknown]
  - Vomiting [Unknown]
  - Fatigue [Unknown]
  - Diarrhoea [Unknown]
  - Febrile neutropenia [Unknown]
  - Asthenia [Unknown]
  - Nausea [Unknown]
  - Neurotoxicity [Unknown]
  - Embolism [Unknown]
